FAERS Safety Report 16753252 (Version 1)
Quarter: 2019Q3

REPORT INFORMATION
  Report Type: Spontaneous
  Country: US (occurrence: US)
  Receive Date: 20190829
  Receipt Date: 20190829
  Transmission Date: 20191005
  Serious: No
  Sender: FDA-Public Use
  Company Number: US-BIOGEN-2018BI00594281

PATIENT
  Age: 37 Year
  Sex: Female

DRUGS (16)
  1. BACLOFEN. [Concomitant]
     Active Substance: BACLOFEN
     Dosage: 10-325
     Route: 050
  2. PAROXETIN [Concomitant]
     Active Substance: PAROXETINE HYDROCHLORIDE
     Route: 050
  3. MECLIZINE [Concomitant]
     Active Substance: MECLIZINE HYDROCHLORIDE
     Dosage: 10-325
     Route: 050
  4. ELETRIPTAN. [Concomitant]
     Active Substance: ELETRIPTAN
     Dosage: 10-325
     Route: 050
  5. HYDROCODONE BITARTRATE AND ACETAMINOPHEN [Concomitant]
     Active Substance: ACETAMINOPHEN\HYDROCODONE BITARTRATE
     Dosage: 10-325
     Route: 050
  6. LORAZEPAM. [Concomitant]
     Active Substance: LORAZEPAM
     Route: 050
  7. GENERIC LYRICA [Suspect]
     Active Substance: PREGABALIN
     Indication: PRODUCT USED FOR UNKNOWN INDICATION
     Route: 065
  8. PREDNISONE. [Concomitant]
     Active Substance: PREDNISONE
     Route: 050
  9. PREGABALIN. [Concomitant]
     Active Substance: PREGABALIN
     Route: 050
  10. PAROXETIN [Concomitant]
     Active Substance: PAROXETINE HYDROCHLORIDE
     Route: 050
  11. DICLOFENAC [Concomitant]
     Active Substance: DICLOFENAC
     Dosage: 10-325
     Route: 050
  12. OXCARBAZEPIN [Concomitant]
     Active Substance: OXCARBAZEPINE
     Route: 050
  13. OXCARBAZEPIN [Concomitant]
     Active Substance: OXCARBAZEPINE
     Route: 050
  14. TECFIDERA [Suspect]
     Active Substance: DIMETHYL FUMARATE
     Indication: MULTIPLE SCLEROSIS
     Dosage: MAINTENANCE DOSE
     Route: 050
     Dates: start: 20180212
  15. TIZANIDINE. [Concomitant]
     Active Substance: TIZANIDINE
     Dosage: 10-325
     Route: 050
  16. SUMATRIPTAN. [Concomitant]
     Active Substance: SUMATRIPTAN
     Dosage: 10-325
     Route: 050

REACTIONS (3)
  - Inflammation [Unknown]
  - Dizziness [Unknown]
  - Flushing [Unknown]

NARRATIVE: CASE EVENT DATE: 20180608
